FAERS Safety Report 19527212 (Version 1)
Quarter: 2021Q3

REPORT INFORMATION
  Report Type: Spontaneous
  Country: NL (occurrence: DE)
  Receive Date: 20210713
  Receipt Date: 20210713
  Transmission Date: 20211014
  Serious: Yes (Other)
  Sender: FDA-Public Use
  Company Number: DE-FRESENIUS KABI-FK202107022

PATIENT
  Age: 61 Year
  Sex: Male
  Weight: 90 kg

DRUGS (5)
  1. KETAMINE [Concomitant]
     Active Substance: KETAMINE
     Indication: LIGHT ANAESTHESIA
     Dosage: 300 MG/H
     Route: 042
     Dates: start: 20210604, end: 20210614
  2. MIDAZOLAM. [Concomitant]
     Active Substance: MIDAZOLAM
     Indication: LIGHT ANAESTHESIA
     Dosage: 20 MG/H
     Route: 042
     Dates: start: 20210603
  3. SUFENTANIL [Concomitant]
     Active Substance: SUFENTANIL
     Indication: LIGHT ANAESTHESIA
     Dosage: 32 UG/H
     Route: 042
     Dates: start: 20210606
  4. DEXMEDETOMIDINE. [Concomitant]
     Active Substance: DEXMEDETOMIDINE
     Indication: LIGHT ANAESTHESIA
     Dosage: 126,4 UG/H
     Route: 042
     Dates: start: 20210608
  5. PROPOFOL (MANUFACTURER UNKNOWN) [Suspect]
     Active Substance: PROPOFOL
     Indication: LIGHT ANAESTHESIA
     Dosage: 300 MG/H
     Route: 042
     Dates: start: 20210608, end: 20210613

REACTIONS (1)
  - Liver disorder [Recovering/Resolving]

NARRATIVE: CASE EVENT DATE: 20210608
